FAERS Safety Report 9423480 (Version 1)
Quarter: 2013Q3

REPORT INFORMATION
  Report Type: Spontaneous
  Country: CH (occurrence: CH)
  Receive Date: 20130726
  Receipt Date: 20130726
  Transmission Date: 20140515
  Serious: Yes (Hospitalization, Other)
  Sender: FDA-Public Use
  Company Number: CH-ASTRAZENECA-2013SE55022

PATIENT
  Age: 88 Year
  Sex: Male
  Weight: 107.2 kg

DRUGS (17)
  1. NEXIUM [Suspect]
     Route: 048
     Dates: end: 20130313
  2. NEXIUM [Interacting]
     Route: 048
     Dates: start: 20130314
  3. SERTRALINE [Interacting]
     Indication: DYSTHYMIC DISORDER
     Route: 048
     Dates: start: 2009
  4. ASPIRIN CARDIO [Interacting]
     Indication: MYOCARDIAL INFARCTION
     Route: 048
     Dates: start: 20130106
  5. SINTROM [Suspect]
     Indication: PULMONARY EMBOLISM
     Route: 048
     Dates: start: 20130109
  6. ATACAND [Concomitant]
     Indication: ESSENTIAL HYPERTENSION
     Route: 048
  7. FLUANXOL [Concomitant]
     Indication: DYSTHYMIC DISORDER
     Route: 048
  8. EUTHYROX [Concomitant]
     Indication: HYPOTHYROIDISM
     Route: 048
  9. GLUCOPHAGE [Concomitant]
     Indication: TYPE 2 DIABETES MELLITUS
     Route: 048
     Dates: start: 20130207
  10. DANCOR [Concomitant]
     Indication: MYOCARDIAL INFARCTION
     Route: 048
  11. DAFALGAN [Concomitant]
     Indication: PAIN
     Route: 048
  12. LAXOBERON [Concomitant]
     Indication: CONSTIPATION
     Dosage: 10 GTT DROPS, 2 PER DAY
     Route: 048
     Dates: start: 20130124
  13. TORASEMIDE [Concomitant]
     Indication: ESSENTIAL HYPERTENSION
     Route: 048
     Dates: end: 20130301
  14. TORASEMIDE [Concomitant]
     Indication: ESSENTIAL HYPERTENSION
     Route: 048
     Dates: start: 20130302
  15. REDOXON [Concomitant]
     Indication: VITAMIN C DEFICIENCY
     Route: 048
     Dates: start: 20130318
  16. IMOVANE [Concomitant]
     Indication: INSOMNIA
     Route: 048
     Dates: start: 20130210
  17. VITAMINE B1 [Concomitant]
     Indication: VITAMIN B1 DEFICIENCY
     Route: 048
     Dates: start: 20130111

REACTIONS (5)
  - Drug interaction [Unknown]
  - Petechiae [Recovering/Resolving]
  - Purpura [Unknown]
  - Infection [Unknown]
  - Tongue haematoma [Recovered/Resolved]
